FAERS Safety Report 17302823 (Version 1)
Quarter: 2020Q1

REPORT INFORMATION
  Report Type: Spontaneous
  Country: US (occurrence: US)
  Receive Date: 20200122
  Receipt Date: 20200122
  Transmission Date: 20200409
  Serious: Yes (Hospitalization, Other)
  Sender: FDA-Public Use
  Company Number: US-009507513-2001USA007710

PATIENT
  Age: 32 Year
  Sex: Female

DRUGS (3)
  1. TEMODAR [Suspect]
     Active Substance: TEMOZOLOMIDE
     Dosage: 140 MG ONCE A DAY FOR 5 DAYS FOR EVERY 28 DAYS CYCLE
     Route: 048
     Dates: start: 20190923
  2. TEMODAR [Suspect]
     Active Substance: TEMOZOLOMIDE
     Indication: BRAIN NEOPLASM
     Dosage: 140 MILLIGRAM, ONCE DAILY FOR 5 DAYS EVERY 28 DAYS CYCLE
     Route: 048
  3. TEMODAR [Suspect]
     Active Substance: TEMOZOLOMIDE
     Dosage: DOSE: 360 MILLIGRAM, TAKE TWO TABLETS BY MOUTH ONCE DAILY FOR 5 DAYS EVERY 28 DAYS
     Route: 048
     Dates: start: 201907

REACTIONS (3)
  - Cerebrovascular accident [Recovered/Resolved]
  - Nausea [Not Recovered/Not Resolved]
  - Vomiting [Not Recovered/Not Resolved]

NARRATIVE: CASE EVENT DATE: 20190923
